FAERS Safety Report 5865030-1 (Version None)
Quarter: 2008Q3

REPORT INFORMATION
  Report Type: 
  Country: None (occurrence: None)
  Receive Date: 20080829
  Receipt Date: 20080822
  Transmission Date: 20090109
  Serious: Yes (Death)
  Sender: FDA-Public Use
  Company Number: A0697767A

PATIENT
  Age: 46 Year
  Sex: Male
  Weight: 65.9 kg

DRUGS (9)
  1. AVANDIA [Suspect]
     Dosage: 8MG PER DAY
     Route: 048
     Dates: start: 20050209, end: 20060430
  2. METFORMIN HCL [Concomitant]
  3. HUMALOG [Concomitant]
  4. REGULAR INSULIN [Concomitant]
  5. LANTUS [Concomitant]
  6. ZOCOR [Concomitant]
  7. WELLBUTRIN [Concomitant]
  8. TERAZOSIN HCL [Concomitant]
  9. LISINOPRIL [Concomitant]

REACTIONS (1)
  - MYOCARDIAL INFARCTION [None]
